FAERS Safety Report 7283718-5 (Version None)
Quarter: 2011Q1

REPORT INFORMATION
  Report Type: 
  Country: None (occurrence: None)
  Receive Date: 20110209
  Receipt Date: 20110128
  Transmission Date: 20110831
  Serious: Yes (Hospitalization)
  Sender: FDA-Public Use
  Company Number: US-ELI_LILLY_AND_COMPANY-US201102001293

PATIENT
  Age: 56 Year
  Sex: Female

DRUGS (4)
  1. AVANDIA [Concomitant]
  2. CYMBALTA [Suspect]
     Dosage: 60 MG, UNK
  3. ANTIHYPERTENSIVES [Concomitant]
  4. ACTOS [Concomitant]

REACTIONS (4)
  - CEREBROVASCULAR ACCIDENT [None]
  - ASTHENIA [None]
  - MENTAL STATUS CHANGES [None]
  - FATIGUE [None]
